FAERS Safety Report 5855408-4 (Version None)
Quarter: 2008Q3

REPORT INFORMATION
  Report Type: 
  Country: None (occurrence: None)
  Receive Date: 20080821
  Receipt Date: 20080807
  Transmission Date: 20090109
  Serious: Yes (Hospitalization)
  Sender: FDA-Public Use
  Company Number: 2008AL009503

PATIENT
  Age: 37 Year
  Sex: Female
  Weight: 77.1115 kg

DRUGS (25)
  1. DIGOXIN [Suspect]
     Dosage: 0.25MG, DAILY, PO
     Route: 048
     Dates: start: 19980101, end: 20000901
  2. DIGOXIN [Suspect]
     Dosage: 0.25MG, DAILY, PO
     Route: 048
     Dates: start: 20070201
  3. DIGOXIN [Suspect]
     Dosage: 0.125MG, DAILY, PO
     Route: 048
     Dates: end: 20001106
  4. PRILOSEC [Concomitant]
  5. BETAPACE [Concomitant]
  6. ASPIRIN [Concomitant]
  7. PEPCID [Concomitant]
  8. IRON SUPPLEMENT (UNSPECIFIED) [Concomitant]
  9. RYTHMOL [Concomitant]
  10. TOPROL-XL [Concomitant]
  11. KDUR [Concomitant]
  12. AXID [Concomitant]
  13. REGLAN [Concomitant]
  14. TYLENOL W/ CODEINE NO. 3 [Concomitant]
  15. ADENOSINE [Concomitant]
  16. PREVACID [Concomitant]
  17. COUMADIN [Concomitant]
  18. DILTIAZEM HCL [Concomitant]
  19. NEXIUM [Concomitant]
  20. DIOVAN [Concomitant]
  21. ZITHROMAX [Concomitant]
  22. CARDIZEM [Concomitant]
  23. XANAX [Concomitant]
  24. SYNTHROID [Concomitant]
  25. LIPITOR [Concomitant]

REACTIONS (22)
  - AORTIC VALVE INCOMPETENCE [None]
  - ATRIAL FIBRILLATION [None]
  - DIZZINESS [None]
  - DYSPEPSIA [None]
  - EJECTION FRACTION DECREASED [None]
  - FATIGUE [None]
  - HEART RATE INCREASED [None]
  - HYPOTENSION [None]
  - LEFT VENTRICULAR HYPERTROPHY [None]
  - MITRAL VALVE CALCIFICATION [None]
  - MYOCARDIAL ISCHAEMIA [None]
  - PALPITATIONS [None]
  - PRESYNCOPE [None]
  - PULMONARY VALVE INCOMPETENCE [None]
  - PULMONARY VASCULAR DISORDER [None]
  - SINUS BRADYCARDIA [None]
  - SINUS TACHYCARDIA [None]
  - SUPRAVENTRICULAR EXTRASYSTOLES [None]
  - SUPRAVENTRICULAR TACHYCARDIA [None]
  - TREATMENT NONCOMPLIANCE [None]
  - TRICUSPID VALVE INCOMPETENCE [None]
  - VENTRICULAR EXTRASYSTOLES [None]
